FAERS Safety Report 6586351-3 (Version None)
Quarter: 2010Q1

REPORT INFORMATION
  Report Type: 
  Country: None (occurrence: None)
  Receive Date: 20100216
  Receipt Date: 20100216
  Transmission Date: 20100710
  Serious: Yes (Other)
  Sender: FDA-Public Use
  Company Number: None

PATIENT
  Sex: Female
  Weight: 49 kg

DRUGS (2)
  1. CIPROFLOXACIN [Suspect]
     Indication: PROPHYLAXIS
     Dosage: 400 MG ONE TIME IV
     Route: 042
     Dates: start: 20100128, end: 20100128
  2. CIPROFLOXACIN [Suspect]
     Indication: SURGERY
     Dosage: 400 MG ONE TIME IV
     Route: 042
     Dates: start: 20100128, end: 20100128

REACTIONS (2)
  - INFUSION SITE ERYTHEMA [None]
  - INFUSION SITE PRURITUS [None]
